FAERS Safety Report 7779144-2 (Version None)
Quarter: 2011Q3

REPORT INFORMATION
  Report Type: 
  Country: None (occurrence: None)
  Receive Date: 20110926
  Receipt Date: 20110918
  Transmission Date: 20111222
  Serious: Yes (Death)
  Sender: FDA-Public Use
  Company Number: PHHY2011US84581

PATIENT
  Age: 16 Year
  Sex: Female

DRUGS (5)
  1. PREDNISONE [Concomitant]
     Dosage: UNK UKN, UNK
  2. BUSULFAN [Concomitant]
     Dosage: UNK UKN, UNK
  3. CYCLOPHOSPHAMIDE [Concomitant]
     Indication: ACUTE GRAFT VERSUS HOST DISEASE
     Dosage: UNK UKN, UNK
  4. METHOTREXATE [Concomitant]
     Dosage: UNK UKN, UNK
  5. CYCLOSPORINE [Suspect]
     Indication: ACUTE GRAFT VERSUS HOST DISEASE
     Dosage: UNK UKN, UNK

REACTIONS (1)
  - LEUKAEMIA RECURRENT [None]
